FAERS Safety Report 18594740 (Version 2)
Quarter: 2020Q4

REPORT INFORMATION
  Report Type: Spontaneous
  Country: MX (occurrence: MX)
  Receive Date: 20201209
  Receipt Date: 20201216
  Transmission Date: 20210114
  Serious: Yes (Hospitalization)
  Sender: FDA-Public Use
  Company Number: MX-AMGEN-MEXSP2020199485

PATIENT
  Age: 7 Year
  Sex: Female

DRUGS (1)
  1. BLINCYTO [Suspect]
     Active Substance: BLINATUMOMAB
     Indication: ACUTE LYMPHOCYTIC LEUKAEMIA
     Dosage: 15 MICROGRAM/SQ. METER (DOSE 4 OF CYCLE 2)
     Route: 065

REACTIONS (5)
  - Disorientation [Unknown]
  - Hypertension [Unknown]
  - Vomiting [Unknown]
  - Somnolence [Unknown]
  - Aphasia [Unknown]

NARRATIVE: CASE EVENT DATE: 20201204
